FAERS Safety Report 14437493 (Version 1)
Quarter: 2018Q1

REPORT INFORMATION
  Report Type: Spontaneous
  Country: US (occurrence: US)
  Receive Date: 20180125
  Receipt Date: 20180125
  Transmission Date: 20180509
  Serious: No
  Sender: FDA-Public Use
  Company Number: US-ABBVIE-17K-163-1929562-00

PATIENT
  Sex: Male

DRUGS (1)
  1. HUMIRA [Suspect]
     Active Substance: ADALIMUMAB
     Indication: PSORIASIS
     Route: 058
     Dates: end: 201702

REACTIONS (2)
  - Hepatitis B surface antigen negative [Not Recovered/Not Resolved]
  - Hepatitis B antibody negative [Not Recovered/Not Resolved]

NARRATIVE: CASE EVENT DATE: 20170315
